FAERS Safety Report 23851999 (Version 1)
Quarter: 2024Q2

REPORT INFORMATION
  Report Type: Spontaneous
  Country: ES (occurrence: ES)
  Receive Date: 20240514
  Receipt Date: 20240514
  Transmission Date: 20240716
  Serious: Yes (Other)
  Sender: FDA-Public Use
  Company Number: ES-MYLANLABS-2022M1110575

PATIENT
  Age: 38 Year
  Sex: Male

DRUGS (16)
  1. AZITHROMYCIN [Suspect]
     Active Substance: AZITHROMYCIN
     Indication: Tuberculosis
     Dosage: UNK
     Route: 065
     Dates: start: 2019
  2. AZITHROMYCIN [Suspect]
     Active Substance: AZITHROMYCIN
     Indication: Mycobacterial infection
  3. LEVOFLOXACIN [Suspect]
     Active Substance: LEVOFLOXACIN
     Indication: Tuberculosis
     Dosage: UNK
     Route: 065
     Dates: start: 202010
  4. LEVOFLOXACIN [Suspect]
     Active Substance: LEVOFLOXACIN
     Indication: Mycobacterial infection
  5. CLOFAZIMINE [Suspect]
     Active Substance: CLOFAZIMINE
     Indication: Tuberculosis
     Dosage: UNK
     Route: 065
     Dates: start: 202010
  6. CLOFAZIMINE [Suspect]
     Active Substance: CLOFAZIMINE
     Indication: Mycobacterial infection
  7. AMIKACIN [Suspect]
     Active Substance: AMIKACIN
     Indication: Tuberculosis
     Dosage: UNK
     Route: 065
     Dates: start: 202010
  8. AMIKACIN [Suspect]
     Active Substance: AMIKACIN
     Indication: Mycobacterial infection
  9. ETHAMBUTOL [Suspect]
     Active Substance: ETHAMBUTOL HYDROCHLORIDE
     Indication: Tuberculosis
     Dosage: UNK
     Route: 065
  10. BICTEGRAVIR [Concomitant]
     Active Substance: BICTEGRAVIR
     Indication: Antiretroviral therapy
     Dosage: UNK
     Route: 065
     Dates: start: 2019
  11. ISONIAZID [Concomitant]
     Active Substance: ISONIAZID
     Indication: Evidence based treatment
     Dosage: UNK
     Route: 065
     Dates: start: 2019
  12. PYRAZINAMIDE [Concomitant]
     Active Substance: PYRAZINAMIDE
     Indication: Evidence based treatment
     Dosage: UNK
     Route: 065
     Dates: start: 2019
  13. PREDNISONE [Concomitant]
     Active Substance: PREDNISONE
     Indication: Evidence based treatment
     Dosage: UNK
     Route: 065
     Dates: start: 2019
  14. RALTEGRAVIR [Concomitant]
     Active Substance: RALTEGRAVIR
     Indication: Antiretroviral therapy
     Dosage: UNK
     Route: 065
     Dates: start: 201904
  15. EMTRICITABINE [Concomitant]
     Active Substance: EMTRICITABINE
     Indication: Antiretroviral therapy
     Dosage: UNK
     Route: 065
     Dates: start: 201904
  16. TENOFOVIR ALAFENAMIDE [Concomitant]
     Active Substance: TENOFOVIR ALAFENAMIDE
     Indication: Antiretroviral therapy
     Dosage: UNK
     Route: 065
     Dates: start: 201904

REACTIONS (1)
  - Drug ineffective [Unknown]
